FAERS Safety Report 15473843 (Version 1)
Quarter: 2018Q4

REPORT INFORMATION
  Report Type: Spontaneous
  Country: US (occurrence: US)
  Receive Date: 20181008
  Receipt Date: 20181008
  Transmission Date: 20190205
  Serious: No
  Sender: FDA-Public Use
  Company Number: US-MYLANLABS-2018M1070605

PATIENT
  Sex: Female

DRUGS (1)
  1. ESTRADIOL TRANSDERMAL SYSTEM [Suspect]
     Active Substance: ESTRADIOL
     Indication: MENSTRUAL DISORDER
     Dosage: 0.05 MG, QD
     Route: 062

REACTIONS (3)
  - Product packaging quantity issue [Unknown]
  - Product adhesion issue [Unknown]
  - Off label use [Not Recovered/Not Resolved]
